FAERS Safety Report 9929285 (Version 1)
Quarter: 2014Q1

REPORT INFORMATION
  Report Type: Spontaneous
  Country: US (occurrence: None)
  Receive Date: 20140109
  Receipt Date: 20140109
  Transmission Date: 20141002
  Serious: Yes (Hospitalization)
  Sender: FDA-Public Use
  Company Number: 371443

PATIENT
  Age: 82 Year
  Sex: Male
  Weight: 70.3 kg

DRUGS (2)
  1. LEVEMIR [Suspect]
     Indication: TYPE 2 DIABETES MELLITUS
     Dosage: 15 U, QD AT NIGHT
     Route: 058
  2. NOVOLOG FLEXPEN (INSULIN ASPART) SOLUTION FOR INJECTION [Concomitant]

REACTIONS (2)
  - Device malfunction [None]
  - Blood glucose increased [None]
